FAERS Safety Report 16070783 (Version 1)
Quarter: 2019Q1

REPORT INFORMATION
  Report Type: Spontaneous
  Country: FR (occurrence: FR)
  Receive Date: 20190314
  Receipt Date: 20190314
  Transmission Date: 20190418
  Serious: Yes (Death)
  Sender: FDA-Public Use
  Company Number: FR-ACCORD-112687

PATIENT
  Age: 77 Year
  Sex: Female
  Weight: 97 kg

DRUGS (16)
  1. FUROSEMIDE. [Suspect]
     Active Substance: FUROSEMIDE
     Indication: CARDIAC FAILURE
     Route: 048
  2. LANTUS [Concomitant]
     Active Substance: INSULIN GLARGINE
  3. ALLOPURINOL. [Concomitant]
     Active Substance: ALLOPURINOL
  4. KETUM [Suspect]
     Active Substance: KETOPROFEN
     Indication: ARTHRALGIA
     Route: 061
     Dates: start: 201512, end: 201512
  5. LASILIX SPECIAL [Concomitant]
     Active Substance: FUROSEMIDE
     Dosage: STRENGTH: 500 MG
  6. BISOPROLOL [Concomitant]
     Active Substance: BISOPROLOL
  7. MANIDIPINE [Concomitant]
     Active Substance: MANIDIPINE
  8. PREVISCAN [Concomitant]
     Dosage: STRENGTH: 20 MG
  9. ATORVASTATIN [Concomitant]
     Active Substance: ATORVASTATIN
  10. CORDARONE [Concomitant]
     Active Substance: AMIODARONE HYDROCHLORIDE
  11. REPAGLINIDE. [Concomitant]
     Active Substance: REPAGLINIDE
  12. RENVELA [Concomitant]
     Active Substance: SEVELAMER CARBONATE
  13. NOVORAPID [Concomitant]
     Active Substance: INSULIN ASPART
  14. CALTRATE [Concomitant]
     Active Substance: CALCIUM CARBONATE
  15. COLECALCIFEROL [Concomitant]
     Active Substance: CHOLECALCIFEROL
  16. LEVOTHYROXINE. [Concomitant]
     Active Substance: LEVOTHYROXINE

REACTIONS (1)
  - Acute kidney injury [Fatal]

NARRATIVE: CASE EVENT DATE: 201601
